FAERS Safety Report 6131267-X (Version None)
Quarter: 2009Q1

REPORT INFORMATION
  Report Type: 
  Country: None (occurrence: None)
  Receive Date: 20090325
  Receipt Date: 20080213
  Transmission Date: 20090719
  Serious: Yes (Other)
  Sender: FDA-Public Use
  Company Number: US-BRISTOL-MYERS SQUIBB COMPANY-14076145

PATIENT

DRUGS (1)
  1. ERBITUX [Suspect]

REACTIONS (5)
  - DIARRHOEA [None]
  - HYPOTENSION [None]
  - RASH ERYTHEMATOUS [None]
  - SWOLLEN TONGUE [None]
  - TACHYCARDIA [None]
